FAERS Safety Report 5844902-8 (Version None)
Quarter: 2008Q3

REPORT INFORMATION
  Report Type: 
  Country: None (occurrence: None)
  Receive Date: 20080812
  Receipt Date: 20080724
  Transmission Date: 20090109
  Serious: Yes (Other)
  Sender: FDA-Public Use
  Company Number: 2008S1013788

PATIENT
  Sex: Male

DRUGS (12)
  1. CLONAZEPAM [Suspect]
     Dosage: 0.5 MG; TRANSPLACENTAL
     Route: 064
  2. FOLIC ACID [Suspect]
     Dosage: 500 UG; TRANSPLACENTAL
     Route: 064
  3. FORANE [Suspect]
     Dosage: TRANSPLACENTAL
  4. HARTMANN'S SOLUTION (RINGER-LACTATE) [Suspect]
     Dosage: TRANSPLACENTAL
  5. LITHIUM CARBONATE [Suspect]
     Dosage: 1.7 G; TRANSPLACENTAL
     Route: 064
  6. METOCLOPRAMIDE [Suspect]
     Dosage: 10 MG; TRANSPLACENTAL
     Route: 064
  7. RANITIDINE [Suspect]
     Dosage: 50 MG; TRANSPLACENTAL
     Route: 064
  8. SODIUM CITRATE [Suspect]
     Dosage: 30 ML; TRANSPLACENTAL
  9. SUXAMETHONIUM (SUXAMETHONIUM) [Suspect]
     Dosage: 100 MG; TRANSPLACENTAL
     Route: 064
  10. THIOPENTONE /00053401/ (THIOPENTAL) [Suspect]
     Dosage: 250 MG; TRANSPLACENTAL
     Route: 064
  11. LACTULOSE [Suspect]
     Dosage: TRANSPLACENTAL
     Route: 064
  12. OLANZAPINE [Suspect]
     Dosage: 20 MG;  TRANSPLACENTAL
     Route: 064

REACTIONS (8)
  - CAESAREAN SECTION [None]
  - CONGENITAL URINARY TRACT OBSTRUCTION [None]
  - DRUG EXPOSURE DURING PREGNANCY [None]
  - MATERNAL DRUGS AFFECTING FOETUS [None]
  - PREMATURE BABY [None]
  - RENAL IMPAIRMENT [None]
  - THERAPEUTIC AGENT TOXICITY [None]
  - TWIN PREGNANCY [None]
